FAERS Safety Report 14684704 (Version 2)
Quarter: 2018Q2

REPORT INFORMATION
  Report Type: Spontaneous
  Country: JP (occurrence: JP)
  Receive Date: 20180327
  Receipt Date: 20180619
  Transmission Date: 20180711
  Serious: Yes (Other)
  Sender: FDA-Public Use
  Company Number: JP-PFIZER INC-2017549053

PATIENT
  Age: 5 Decade
  Sex: Male

DRUGS (1)
  1. INLYTA [Suspect]
     Active Substance: AXITINIB
     Indication: RENAL CELL CARCINOMA
     Dosage: 10 MG, UNK
     Dates: start: 201708

REACTIONS (3)
  - Hypertension [Unknown]
  - Vision blurred [Unknown]
  - Facial paralysis [Unknown]

NARRATIVE: CASE EVENT DATE: 2017
